FAERS Safety Report 6224653-0 (Version None)
Quarter: 2009Q2

REPORT INFORMATION
  Report Type: 
  Country: None (occurrence: None)
  Receive Date: 20090612
  Receipt Date: 20090324
  Transmission Date: 20091009
  Serious: No
  Sender: FDA-Public Use
  Company Number: US-ABBOTT-09P-163-0564657-00

PATIENT
  Sex: Male
  Weight: 119.86 kg

DRUGS (27)
  1. HUMIRA [Suspect]
     Indication: RHEUMATOID ARTHRITIS
     Route: 058
     Dates: start: 20080201, end: 20080301
  2. HUMIRA [Suspect]
     Indication: SCLERITIS
     Route: 058
     Dates: start: 20081101, end: 20090201
  3. HUMIRA [Suspect]
     Indication: GLAUCOMA
     Route: 058
     Dates: start: 20090201, end: 20090309
  4. ATENOLOL [Concomitant]
     Indication: HYPERTENSION
     Route: 048
  5. LISINOPRIL [Concomitant]
     Indication: HYPERTENSION
     Route: 048
  6. METFORMIN HYDROCHLORIDE [Concomitant]
     Indication: TYPE 2 DIABETES MELLITUS
     Route: 048
  7. LEVIMIR INSULIN [Concomitant]
     Indication: TYPE 2 DIABETES MELLITUS
     Route: 058
  8. PLAVIX [Concomitant]
     Indication: ANTICOAGULANT THERAPY
     Route: 048
  9. PRAVASTATIN [Concomitant]
     Indication: BLOOD CHOLESTEROL INCREASED
     Route: 048
  10. FOLIC ACID [Concomitant]
     Indication: VITAMIN SUPPLEMENTATION
     Route: 048
  11. PREDNISONE [Concomitant]
     Indication: SCLERITIS
     Route: 048
  12. PREDNISONE [Concomitant]
     Indication: GLAUCOMA
  13. FUROSEMIDE [Concomitant]
     Indication: FLUID RETENTION
     Route: 048
  14. TRUSOPT [Concomitant]
     Indication: SCLERITIS
     Dosage: EACH EYE
     Route: 047
  15. TRUSOPT [Concomitant]
     Indication: GLAUCOMA
  16. COMBIGAN [Concomitant]
     Indication: SCLERITIS
     Dosage: EACH EYE
     Route: 047
  17. COMBIGAN [Concomitant]
     Indication: GLAUCOMA
  18. TRAVATAN [Concomitant]
     Indication: SCLERITIS
     Dosage: EACH EYE
     Route: 047
  19. TRAVATAN [Concomitant]
     Indication: GLAUCOMA
  20. OMEGA FISH OIL [Concomitant]
     Indication: MEDICAL DIET
     Route: 048
  21. FLAX SEED POWDER [Concomitant]
     Indication: MEDICAL DIET
     Route: 048
  22. ASPIRIN [Concomitant]
     Indication: ANTICOAGULANT THERAPY
     Route: 048
  23. CALCIUM [Concomitant]
     Indication: MEDICAL DIET
     Route: 048
  24. SPIRULINE [Concomitant]
     Indication: MEDICAL DIET
     Route: 047
  25. BILBERRY [Concomitant]
     Indication: MEDICAL DIET
     Route: 048
  26. VITAMIN D/E [Concomitant]
     Indication: MEDICAL DIET
     Route: 048
  27. LEVITRA [Concomitant]
     Indication: DRUG USE FOR UNKNOWN INDICATION
     Dosage: UNKNOWN
     Route: 048

REACTIONS (1)
  - MUSCULOSKELETAL PAIN [None]
